FAERS Safety Report 15613441 (Version 2)
Quarter: 2018Q4

REPORT INFORMATION
  Report Type: Spontaneous
  Country: US (occurrence: US)
  Receive Date: 20181113
  Receipt Date: 20181219
  Transmission Date: 20190205
  Serious: No
  Sender: FDA-Public Use
  Company Number: US-PFIZER INC-2018451300

PATIENT
  Age: 64 Year
  Sex: Female

DRUGS (1)
  1. METHOTREXATE SODIUM. [Suspect]
     Active Substance: METHOTREXATE SODIUM
     Indication: RHEUMATOID ARTHRITIS
     Dosage: 12.5 MG, 2 SUBCUTANEOUS DOSES WITH A WEEK APART
     Route: 058
     Dates: start: 2011

REACTIONS (4)
  - Oropharyngeal pain [Unknown]
  - Mucosal inflammation [Unknown]
  - Drug hypersensitivity [Unknown]
  - Dysphagia [Unknown]

NARRATIVE: CASE EVENT DATE: 2011
